FAERS Safety Report 15811689 (Version 1)
Quarter: 2019Q1

REPORT INFORMATION
  Report Type: Spontaneous
  Country: US (occurrence: US)
  Receive Date: 20190111
  Receipt Date: 20190111
  Transmission Date: 20190417
  Serious: No
  Sender: FDA-Public Use
  Company Number: US-PFIZER INC-2019011615

PATIENT
  Age: 89 Year
  Sex: Female
  Weight: 43.9 kg

DRUGS (3)
  1. CITRACAL [CALCIUM CITRATE] [Concomitant]
     Active Substance: CALCIUM CITRATE
     Indication: CALCIUM DEFICIENCY
     Dosage: UNK
  2. METOPROLOL. [Concomitant]
     Active Substance: METOPROLOL
     Indication: BLOOD PRESSURE ABNORMAL
     Dosage: 50 MG, 1X/DAY [50 MG, TAKE ONE TABLET EACH MORNING BY MOUTH]
     Route: 048
  3. ADVIL [Suspect]
     Active Substance: IBUPROFEN
     Indication: PAIN
     Dosage: 200 MG ONE TO TWO TABLETS EVERY 6 HOURS
     Dates: start: 201811

REACTIONS (1)
  - Hypersomnia [Not Recovered/Not Resolved]
